FAERS Safety Report 8545848 (Version 2)
Quarter: 2012Q4

REPORT INFORMATION
  Report Type: 
  Country: US (occurrence: US)
  Receive Date: 20120504
  Receipt Date: 20121214
  Transmission Date: 20130627
  Serious: Yes (Death)
  Sender: FDA-Public Use
  Company Number: US-BIOGENIDEC-2012BI014754

PATIENT
  Age: 57 Year
  Sex: Female

DRUGS (12)
  1. TYSABRI [Suspect]
     Indication: MULTIPLE SCLEROSIS
     Dates: start: 20070315, end: 20110627
  2. KLONIPIN [Concomitant]
     Indication: COORDINATION ABNORMAL
  3. KLONIPIN [Concomitant]
     Indication: SLEEP DISORDER
  4. PROZAC [Concomitant]
     Indication: AFFECTIVE DISORDER
  5. B12 [Concomitant]
  6. PEPCID AC [Concomitant]
  7. ARICEPT [Concomitant]
     Indication: AMNESIA
  8. PHENERGAN [Concomitant]
     Indication: NAUSEA
  9. DARVOCET N 100 [Concomitant]
     Indication: NEURALGIA
  10. AMPYRA [Concomitant]
  11. VICODIN [Concomitant]
  12. ANTIVERT [Concomitant]

REACTIONS (1)
  - Death [Fatal]
